FAERS Safety Report 25401146 (Version 2)
Quarter: 2025Q3

REPORT INFORMATION
  Report Type: Spontaneous
  Country: EU (occurrence: EU)
  Receive Date: 20250605
  Receipt Date: 20250714
  Transmission Date: 20251021
  Serious: No
  Sender: ABBVIE
  Company Number: EU-TEVA-VS-3337600

PATIENT
  Age: 53 Year
  Sex: Male

DRUGS (4)
  1. OXYBUTYNIN [Suspect]
     Active Substance: OXYBUTYNIN
     Indication: Urinary incontinence
     Route: 065
     Dates: start: 2024
  2. OXYBUTYNIN [Suspect]
     Active Substance: OXYBUTYNIN
     Dosage: DOSE - 1 PATCH EVERY FOUR DAYS
     Route: 065
  3. OXYBUTYNIN [Suspect]
     Active Substance: OXYBUTYNIN
     Dosage: DOSE - 1 PATCH EVERY FIVE DAYS
     Route: 065
     Dates: start: 2025, end: 202506
  4. UNSPECIFIED INGREDIENT [Concomitant]
     Active Substance: UNSPECIFIED INGREDIENT
     Indication: Product used for unknown indication

REACTIONS (5)
  - Insomnia [Not Recovered/Not Resolved]
  - Condition aggravated [Recovered/Resolved]
  - Groin pain [Recovered/Resolved]
  - Diplopia [Recovered/Resolved]
  - Gait disturbance [Recovered/Resolved]

NARRATIVE: CASE EVENT DATE: 20240101
